FAERS Safety Report 8518809-1 (Version None)
Quarter: 2012Q3

REPORT INFORMATION
  Report Type: 
  Country: None (occurrence: None)
  Receive Date: 20120718
  Receipt Date: 20120702
  Transmission Date: 20120928
  Serious: No
  Sender: FDA-Public Use
  Company Number: US-ASTRAZENECA-2011SE35376

PATIENT
  Age: 57 Year
  Sex: Female

DRUGS (32)
  1. SEROQUEL [Concomitant]
     Route: 048
  2. SEROQUEL [Concomitant]
     Route: 048
  3. NO-DOZ MAXIMUM STRENGTH VIVARIN [Concomitant]
     Indication: SOMNOLENCE
     Dosage: 200-300MG THREE TIMES A DAYAS NEEDED
     Route: 048
  4. ULTRAM [Concomitant]
     Route: 048
  5. PREDNISONE [Concomitant]
     Route: 048
  6. CATAPRES [Concomitant]
     Route: 048
  7. EXCEDRIN EXTRA STRENGTH TABLETS [Concomitant]
     Indication: HEADACHE
     Dosage: 250-250-65MG, ONE TO TWO TABLETS THREE TIMES A DAY
     Route: 048
  8. VERAPAMIL [Concomitant]
     Route: 048
  9. PEPCID [Concomitant]
  10. RELAFEN [Concomitant]
     Route: 048
  11. ULTRAM [Concomitant]
     Route: 048
  12. EXCEDRIN EXTRA STRENGTH TABLETS [Concomitant]
     Indication: PAIN
     Dosage: 250-250-65MG, ONE TO TWO TABLETS THREE TIMES A DAY
     Route: 048
  13. EXCEDRIN EXTRA STRENGTH TABLETS [Concomitant]
     Dosage: 250-250-65MG, 1 TO TABLETS AS NEEDED
     Route: 048
  14. NEURONTIN [Concomitant]
     Route: 048
  15. FISH OIL [Concomitant]
     Route: 048
  16. SEROQUEL [Concomitant]
     Route: 048
  17. GLUCOPHAGE XR [Concomitant]
     Route: 048
  18. BENEFIBER PO [Concomitant]
     Dosage: ONE TABLESPOONFUL BY MOUTH TWO TIMES A DAY
     Route: 048
  19. PRILOSEC [Suspect]
     Route: 048
  20. PLAVIX [Concomitant]
     Route: 048
  21. NEURONTIN [Concomitant]
     Route: 048
  22. THERA-M [Concomitant]
     Route: 048
  23. REVIA [Concomitant]
     Route: 048
  24. ASPIRIN [Concomitant]
     Route: 048
  25. VOLTAREN [Concomitant]
     Dosage: APPLY TOPICALLY THREE TIMES AS NEEDED
     Route: 061
  26. FLEXERIL [Concomitant]
     Route: 048
  27. VOLTAREN [Concomitant]
     Indication: PAIN
     Dosage: APPLY TOPICALLY THREE TIMES AS NEEDED
     Route: 061
  28. ZOCOR [Concomitant]
     Route: 048
  29. NEXIUM [Concomitant]
     Route: 048
  30. ASENDIN [Concomitant]
     Route: 048
  31. EXCEDRIN EXTRA STRENGTH TABLETS [Concomitant]
     Dosage: 250-250-65MG, 1 TO TABLETS AS NEEDED
     Route: 048
  32. CALCIUM CARBONATE- VITAMIN D [Concomitant]
     Dosage: 600MG-400MG, TWO TABLET DAILY
     Route: 048

REACTIONS (3)
  - DRUG HYPERSENSITIVITY [None]
  - HEADACHE [None]
  - DOCUMENTED HYPERSENSITIVITY TO ADMINISTERED DRUG [None]
